FAERS Safety Report 16169352 (Version 1)
Quarter: 2019Q2

REPORT INFORMATION
  Report Type: Spontaneous
  Country: US (occurrence: US)
  Receive Date: 20190407
  Receipt Date: 20190407
  Transmission Date: 20190711
  Serious: No
  Sender: FDA-Public Use
  Company Number: None

PATIENT
  Sex: Female

DRUGS (1)
  1. ZEJULA [Suspect]
     Active Substance: NIRAPARIB
     Indication: OVARIAN CANCER
     Dates: start: 20171127

REACTIONS (4)
  - Device issue [None]
  - Diabetes mellitus inadequate control [None]
  - Incorrect route of product administration [None]
  - Neuropathy peripheral [None]
